FAERS Safety Report 6667096-8 (Version None)
Quarter: 2010Q2

REPORT INFORMATION
  Report Type: 
  Country: None (occurrence: None)
  Receive Date: 20100401
  Receipt Date: 20100324
  Transmission Date: 20101027
  Serious: No
  Sender: FDA-Public Use
  Company Number: 541608

PATIENT
  Age: 81 Year
  Sex: Female

DRUGS (1)
  1. DOPAMINE HCL [Suspect]
     Indication: DRUG USE FOR UNKNOWN INDICATION
     Dosage: 5 MCG/KG/MIN, CONTINUOUS
     Dates: start: 20100321, end: 20100321

REACTIONS (3)
  - FLUSHING [None]
  - HYPOACUSIS [None]
  - UNRESPONSIVE TO STIMULI [None]
